FAERS Safety Report 15788102 (Version 2)
Quarter: 2019Q2

REPORT INFORMATION
  Report Type: Spontaneous
  Country: US (occurrence: US)
  Receive Date: 20190104
  Receipt Date: 20190620
  Transmission Date: 20190711
  Serious: Yes (Hospitalization)
  Sender: FDA-Public Use
  Company Number: US-BRISTOL-MYERS SQUIBB COMPANY-BMS-2018-123163

PATIENT
  Age: 62 Year
  Sex: Male
  Weight: 77.09 kg

DRUGS (2)
  1. ELIQUIS [Suspect]
     Active Substance: APIXABAN
     Indication: PRODUCT USED FOR UNKNOWN INDICATION
     Dosage: 5 MILLIGRAM, BID
     Route: 048
  2. ELIQUIS [Suspect]
     Active Substance: APIXABAN
     Indication: DEEP VEIN THROMBOSIS
     Dosage: 4 TABLET 5 MILLIGRAM IN A 24 HOUR PERIOD
     Route: 065
     Dates: start: 20180926

REACTIONS (8)
  - Product administration error [Unknown]
  - Wrong technique in product usage process [Unknown]
  - Headache [Not Recovered/Not Resolved]
  - Drug ineffective [Unknown]
  - Visual impairment [Not Recovered/Not Resolved]
  - Tooth disorder [Unknown]
  - Hypertension [Unknown]
  - Palpitations [Unknown]

NARRATIVE: CASE EVENT DATE: 20181230
